FAERS Safety Report 25023214 (Version 1)
Quarter: 2025Q1

REPORT INFORMATION
  Report Type: Spontaneous
  Country: CH (occurrence: CH)
  Receive Date: 20250228
  Receipt Date: 20250228
  Transmission Date: 20250409
  Serious: Yes (Other)
  Sender: TEVA
  Company Number: None

PATIENT
  Age: 40 Year
  Sex: Female

DRUGS (5)
  1. METHYLPHENIDATE [Suspect]
     Active Substance: METHYLPHENIDATE
     Indication: Attention deficit hyperactivity disorder
     Dosage: METHYLPHENIDATE MEPHA, 27MG 1-0-0-0 SINCE 04/2024 (18MG/DAY),
     Route: 048
     Dates: start: 202404, end: 202409
  2. METHYLPHENIDATE [Suspect]
     Active Substance: METHYLPHENIDATE
     Indication: Attention deficit hyperactivity disorder
     Dosage: INCREASED TO 27MG/DAY IN SEPT. 2024, STOPPED ON 31.10.2024.
     Route: 048
     Dates: start: 202409, end: 20241031
  3. NOVALGIN (METAMIZOLE SODIUM) [Suspect]
     Active Substance: METAMIZOLE SODIUM
     Indication: Product used for unknown indication
     Route: 048
  4. NOVALGIN (METAMIZOLE SODIUM) [Suspect]
     Active Substance: METAMIZOLE SODIUM
     Indication: Product used for unknown indication
     Dosage: MAX 4X/D. TAKEN REGULARLY FROM 15.10. TO 23.10.2024, NO INFORMATION ON DISCONTINUATION BY 08.11.2024
     Route: 048
     Dates: start: 20241015, end: 20241023
  5. FLUOXETINE [Suspect]
     Active Substance: FLUOXETINE HYDROCHLORIDE
     Indication: Premenstrual dysphoric disorder
     Dosage: 20MG ?-0-0-0
     Route: 048
     Dates: start: 202311, end: 20241108

REACTIONS (1)
  - Drug-induced liver injury [Unknown]

NARRATIVE: CASE EVENT DATE: 20241108
